FAERS Safety Report 9146901 (Version 1)
Quarter: 2013Q1

REPORT INFORMATION
  Report Type: Report from Study
  Country: GB (occurrence: GB)
  Receive Date: 20130307
  Receipt Date: 20130307
  Transmission Date: 20140127
  Serious: Yes (Hospitalization)
  Sender: FDA-Public Use
  Company Number: GB-ROCHE-1197752

PATIENT
  Age: 66 Year
  Sex: Male
  Weight: 54 kg

DRUGS (4)
  1. BEVACIZUMAB [Suspect]
     Indication: ADENOCARCINOMA
     Dosage: LAST DOSE PRIOR TO SAE: 27/DEC/2012 AT 480MG
     Route: 042
     Dates: start: 20120529
  2. CAPECITABINE [Suspect]
     Indication: ADENOCARCINOMA
     Dosage: LAST DOSE PRIOR TO SAE: 04/DEC/2012 OF 1600MG
     Route: 048
     Dates: start: 20120529, end: 20121204
  3. CISPLATIN [Suspect]
     Indication: ADENOCARCINOMA
     Dosage: LAST DOSE PRIOR TO SAE: 04/DEC/2012 OF 100MG
     Route: 042
     Dates: start: 20120529, end: 20121204
  4. EPIRUBICIN [Suspect]
     Indication: ADENOCARCINOMA
     Dosage: LAST DOSE PRIOR TO SAE: 04/DEC/2012 OF 90MG
     Route: 042
     Dates: start: 20120529, end: 20121204

REACTIONS (1)
  - Alanine aminotransferase increased [Recovered/Resolved]
